FAERS Safety Report 6948619-8 (Version None)
Quarter: 2010Q3

REPORT INFORMATION
  Report Type: 
  Country: None (occurrence: None)
  Receive Date: 20100828
  Receipt Date: 20091123
  Transmission Date: 20110219
  Serious: No
  Sender: FDA-Public Use
  Company Number: US-ABBOTT-09P-163-0611069-00

PATIENT
  Sex: Male
  Weight: 83.536 kg

DRUGS (4)
  1. NIASPAN [Suspect]
     Indication: HIGH DENSITY LIPOPROTEIN DECREASED
     Dates: start: 20090601
  2. ASPIRIN [Concomitant]
     Indication: PRODUCT USED FOR UNKNOWN INDICATION
  3. LIPITOR [Concomitant]
     Indication: PRODUCT USED FOR UNKNOWN INDICATION
  4. FLOMAX [Concomitant]
     Indication: BLADDER SPASM

REACTIONS (2)
  - FLUSHING [None]
  - MIDDLE INSOMNIA [None]
